FAERS Safety Report 6010735-5 (Version None)
Quarter: 2008Q4

REPORT INFORMATION
  Report Type: 
  Country: None (occurrence: None)
  Receive Date: 20081218
  Receipt Date: 20080122
  Transmission Date: 20090506
  Serious: No
  Sender: FDA-Public Use
  Company Number: US-AMGEN-KDL257076

PATIENT
  Sex: Male

DRUGS (9)
  1. ENBREL [Suspect]
     Indication: RHEUMATOID ARTHRITIS
     Route: 058
     Dates: start: 20051020
  2. PLAQUENIL [Concomitant]
     Route: 048
     Dates: start: 20051020
  3. METHOTREXATE [Concomitant]
     Route: 048
     Dates: start: 20051020
  4. LORCET-HD [Concomitant]
     Dates: start: 20051020
  5. FOLIC ACID [Concomitant]
     Dates: start: 20051020
  6. VALIUM [Concomitant]
     Dates: start: 20051020
  7. OSCAL D [Concomitant]
     Dates: start: 20051020
  8. SOMA [Concomitant]
     Dates: start: 20051020
  9. OXYCONTIN [Concomitant]
     Dates: start: 20060525

REACTIONS (8)
  - ARTHRALGIA [None]
  - BACK PAIN [None]
  - HYPOAESTHESIA [None]
  - JOINT SWELLING [None]
  - OEDEMA PERIPHERAL [None]
  - PAIN IN EXTREMITY [None]
  - PARAESTHESIA [None]
  - RHEUMATOID ARTHRITIS [None]
